FAERS Safety Report 5669704-7 (Version None)
Quarter: 2008Q1

REPORT INFORMATION
  Report Type: 
  Country: None (occurrence: None)
  Receive Date: 20080317
  Receipt Date: 20080311
  Transmission Date: 20080703
  Serious: Yes (Death, Hospitalization)
  Sender: FDA-Public Use
  Company Number: PHHO2007HU19992

PATIENT
  Age: 64 Year
  Sex: Male
  Weight: 95.5 kg

DRUGS (10)
  1. ALISKIREN VS PLACEBO [Suspect]
     Indication: ACUTE CORONARY SYNDROME
     Dosage: CODE NOT BROKEN
     Route: 048
     Dates: start: 20071116, end: 20071205
  2. VALSARTAN [Suspect]
     Indication: ACUTE CORONARY SYNDROME
     Dosage: CODE NOT BROKEN
     Route: 048
     Dates: start: 20071116, end: 20071205
  3. ACARBOSE [Concomitant]
  4. PIRACETAM [Concomitant]
  5. CARBAMAZEPINE [Concomitant]
  6. GLIMEPIRIDE [Concomitant]
  7. BISOPROLOL FUMARATE [Concomitant]
  8. DOXAZOSIN MESYLATE [Concomitant]
  9. FUROSEMIDE [Concomitant]
  10. KALIUM [Concomitant]

REACTIONS (4)
  - ACUTE MYOCARDIAL INFARCTION [None]
  - CHEST PAIN [None]
  - DISEASE PROGRESSION [None]
  - DYSPNOEA [None]
